FAERS Safety Report 14151977 (Version 1)
Quarter: 2017Q4

REPORT INFORMATION
  Report Type: Spontaneous
  Country: US (occurrence: US)
  Receive Date: 20171102
  Receipt Date: 20171102
  Transmission Date: 20180321
  Serious: No
  Sender: FDA-Public Use
  Company Number: US-AUROBINDO-AUR-APU-2017-40249

PATIENT
  Sex: Female
  Weight: 49 kg

DRUGS (1)
  1. ESCITALOPRAM TABLETS USP 5MG [Suspect]
     Active Substance: ESCITALOPRAM OXALATE
     Indication: ANXIETY
     Dosage: 5 MG, DAILY
     Route: 065
     Dates: start: 20170803

REACTIONS (1)
  - Eye pain [Recovered/Resolved]
